FAERS Safety Report 24770965 (Version 3)
Quarter: 2025Q1

REPORT INFORMATION
  Report Type: Report from Study
  Country: BR (occurrence: BR)
  Receive Date: 20241224
  Receipt Date: 20250228
  Transmission Date: 20250409
  Serious: Yes (Hospitalization, Other)
  Sender: TAKEDA
  Company Number: BR-TAKEDA-BR202012719

PATIENT
  Age: 16 Year
  Sex: Male
  Weight: 67 kg

DRUGS (9)
  1. IDURSULFASE [Suspect]
     Active Substance: IDURSULFASE
     Indication: Mucopolysaccharidosis II
  2. IDURSULFASE [Suspect]
     Active Substance: IDURSULFASE
  3. IDURSULFASE [Suspect]
     Active Substance: IDURSULFASE
  4. IDURSULFASE [Suspect]
     Active Substance: IDURSULFASE
     Dosage: 4 DOSAGE FORM, 1/WEEK
  5. IDURSULFASE [Suspect]
     Active Substance: IDURSULFASE
  6. IDURSULFASE [Suspect]
     Active Substance: IDURSULFASE
     Dosage: UNK UNK, 1/WEEK
  7. IDURSULFASE [Suspect]
     Active Substance: IDURSULFASE
     Dosage: UNK UNK, 1/WEEK
  8. IDURSULFASE [Suspect]
     Active Substance: IDURSULFASE
  9. IDURSULFASE [Suspect]
     Active Substance: IDURSULFASE

REACTIONS (10)
  - Papilloedema [Unknown]
  - Off label use [Unknown]
  - Product dose omission issue [Unknown]
  - Chest pain [Recovered/Resolved]
  - Pyrexia [Unknown]
  - Weight increased [Unknown]
  - Acne [Unknown]
  - Inappropriate schedule of product administration [Unknown]
  - Feeling abnormal [Recovered/Resolved]
  - Cough [Recovered/Resolved]

NARRATIVE: CASE EVENT DATE: 20210515
